FAERS Safety Report 10543300 (Version 1)
Quarter: 2014Q4

REPORT INFORMATION
  Report Type: Spontaneous
  Country: US (occurrence: None)
  Receive Date: 20141010
  Receipt Date: 20141010
  Transmission Date: 20150529
  Serious: Yes (Other)
  Sender: FDA-Public Use
  Company Number: 163-POMAL-14063373

PATIENT
  Age: 66 Year
  Sex: Female
  Weight: 67.6 kg

DRUGS (9)
  1. OMEPRAZOLE. [Concomitant]
     Active Substance: OMEPRAZOLE
  2. VESICARE(SOLIFENACIN SUCCINATEN) [Concomitant]
  3. ASA(ACETYLSACLICYLIC ACID) [Concomitant]
  4. AMLODIPINE [Concomitant]
     Active Substance: AMLODIPINE BESYLATE
  5. ZOMETA(ZOLEDRONIC ACID) [Concomitant]
  6. MULTIVITAMINS [Concomitant]
     Active Substance: VITAMINS
  7. DEXAMETHASONE. [Concomitant]
     Active Substance: DEXAMETHASONE
  8. POMALYST [Suspect]
     Active Substance: POMALIDOMIDE
     Indication: PLASMA CELL MYELOMA
     Route: 048
     Dates: start: 201305
  9. CALTRATE 600 + (CALCITE D) [Concomitant]

REACTIONS (1)
  - Pollakiuria [None]
